FAERS Safety Report 7962243-X (Version None)
Quarter: 2011Q4

REPORT INFORMATION
  Report Type: 
  Country: None (occurrence: None)
  Receive Date: 20111207
  Receipt Date: 20111130
  Transmission Date: 20120403
  Serious: Yes (Death, Hospitalization, Other)
  Sender: FDA-Public Use
  Company Number: PHHY2011IT105259

PATIENT
  Age: 50 Year
  Sex: Female

DRUGS (2)
  1. STEROIDS NOS [Concomitant]
     Dosage: UNK UKN, UNK
  2. MYCOPHENOLIC ACID [Suspect]
     Indication: RENAL TRANSPLANT
     Dosage: UNK UKN, UNK

REACTIONS (18)
  - HEPATIC ENCEPHALOPATHY [None]
  - VULVOVAGINAL CANDIDIASIS [None]
  - CANDIDURIA [None]
  - PYREXIA [None]
  - CYTOMEGALOVIRUS INFECTION [None]
  - SEPSIS [None]
  - LIVER INJURY [None]
  - JAUNDICE [None]
  - INTERNATIONAL NORMALISED RATIO INCREASED [None]
  - URINARY FISTULA [None]
  - HEPATITIS C [None]
  - DEVICE RELATED INFECTION [None]
  - COAGULOPATHY [None]
  - HEPATIC FAILURE [None]
  - HAEMORRHAGE [None]
  - HYPOTENSION [None]
  - LEUKOCYTOSIS [None]
  - CANDIDIASIS [None]
